FAERS Safety Report 7284354-7 (Version None)
Quarter: 2011Q1

REPORT INFORMATION
  Report Type: 
  Country: None (occurrence: None)
  Receive Date: 20110209
  Receipt Date: 20110126
  Transmission Date: 20110831
  Serious: Yes (Other)
  Sender: FDA-Public Use
  Company Number: US-BAYER-200829328NA

PATIENT
  Sex: Male

DRUGS (22)
  1. OPTIMARK [Suspect]
     Indication: PRODUCT USED FOR UNKNOWN INDICATION
  2. LISINOPRIL [Concomitant]
  3. MAGNEVIST [Suspect]
     Indication: RENAL FAILURE
     Dates: start: 20041202, end: 20041202
  4. PROHANCE [Suspect]
     Indication: PRODUCT USED FOR UNKNOWN INDICATION
  5. AMIODARONE [Concomitant]
     Indication: BLOOD PRESSURE ABNORMAL
     Dosage: 200 MG (DAILY DOSE), ,
  6. HUMALOG [Concomitant]
     Indication: DIABETES MELLITUS
  7. PROCRIT [Concomitant]
     Indication: BLOOD PRESSURE ABNORMAL
     Dosage: ON DIALYSIS DAYS
  8. MAGNEVIST [Suspect]
     Indication: ANGIOGRAM
  9. LISINOPRIL [Concomitant]
     Indication: CARDIAC DISORDER
     Dosage: 10 MG (DAILY DOSE), ,
  10. ANTITHROMBOTIC AGENTS [Concomitant]
  11. HYDRALAZINE [Concomitant]
     Indication: BLOOD PRESSURE ABNORMAL
     Dosage: 25 MG (DAILY DOSE), ,
  12. COREG [Concomitant]
     Indication: CARDIAC DISORDER
  13. WARFARIN SODIUM [Concomitant]
     Indication: BLOOD PRESSURE ABNORMAL
     Dosage: 5 MG (DAILY DOSE), ,
  14. IRON [IRON] [Concomitant]
     Indication: DIALYSIS
     Dosage: ON DIALYSIS DAYS
  15. MULTIHANCE [Suspect]
     Indication: PRODUCT USED FOR UNKNOWN INDICATION
  16. WARFARIN SODIUM [Concomitant]
     Indication: CARDIAC DISORDER
  17. LANTUS [Concomitant]
     Indication: DIABETES MELLITUS
  18. OMNISCAN [Suspect]
     Indication: PRODUCT USED FOR UNKNOWN INDICATION
  19. AMIODARONE [Concomitant]
     Indication: CARDIAC DISORDER
  20. HYDRALAZINE [Concomitant]
     Indication: CARDIAC DISORDER
  21. COREG [Concomitant]
     Indication: BLOOD PRESSURE ABNORMAL
  22. MULTIVITAMIN [Concomitant]

REACTIONS (23)
  - NEPHROGENIC SYSTEMIC FIBROSIS [None]
  - MOBILITY DECREASED [None]
  - BACK PAIN [None]
  - PAIN [None]
  - JOINT INSTABILITY [None]
  - PAIN IN EXTREMITY [None]
  - ARTHRALGIA [None]
  - BURNING SENSATION [None]
  - INJURY [None]
  - RASH GENERALISED [None]
  - SKIN ULCER [None]
  - GENERAL PHYSICAL HEALTH DETERIORATION [None]
  - PRURITUS [None]
  - EMOTIONAL DISTRESS [None]
  - MUSCULAR WEAKNESS [None]
  - SKIN INDURATION [None]
  - FATIGUE [None]
  - CHEST PAIN [None]
  - ABASIA [None]
  - MUSCULOSKELETAL CHEST PAIN [None]
  - ANXIETY [None]
  - JOINT SWELLING [None]
  - MOTOR DYSFUNCTION [None]
